FAERS Safety Report 4428515-0 (Version None)
Quarter: 2004Q3

REPORT INFORMATION
  Report Type: 
  Country: None (occurrence: None)
  Receive Date: 20040817
  Receipt Date: 20040811
  Transmission Date: 20050211
  Serious: No
  Sender: FDA-Public Use
  Company Number: 2004UW14750

PATIENT
  Age: 66 Year
  Sex: Female
  Weight: 55.7924 kg

DRUGS (3)
  1. CRESTOR [Suspect]
     Dosage: 10 MG QD PO
     Route: 048
  2. SYNTHROID [Concomitant]
  3. LORATADINE [Concomitant]

REACTIONS (5)
  - DIARRHOEA [None]
  - DIZZINESS [None]
  - HYPERCALCAEMIA [None]
  - MYALGIA [None]
  - VOMITING [None]
